FAERS Safety Report 6899756-8 (Version None)
Quarter: 2010Q3

REPORT INFORMATION
  Report Type: 
  Country: None (occurrence: None)
  Receive Date: 20100729
  Receipt Date: 20100715
  Transmission Date: 20110219
  Serious: Yes (Other)
  Sender: FDA-Public Use
  Company Number: 7011785

PATIENT
  Age: 63 Year
  Sex: Female
  Weight: 58 kg

DRUGS (8)
  1. REBIF [Suspect]
     Indication: MULTIPLE SCLEROSIS
  2. ZOLOFT [Concomitant]
  3. EFFEXOR [Concomitant]
  4. CYMBALTA [Concomitant]
  5. CELEXA [Concomitant]
  6. WELLBUTRIN XL [Concomitant]
  7. SINGLULAIR (MONTELUKAST) [Concomitant]
  8. NEURONTIN [Concomitant]

REACTIONS (7)
  - ABDOMINAL DISCOMFORT [None]
  - DEPRESSED MOOD [None]
  - DRUG HYPERSENSITIVITY [None]
  - MUSCLE DISORDER [None]
  - MUSCLE SPASMS [None]
  - NAUSEA [None]
  - UNEVALUABLE EVENT [None]
